FAERS Safety Report 16030676 (Version 2)
Quarter: 2019Q2

REPORT INFORMATION
  Report Type: Report from Study
  Country: US (occurrence: US)
  Receive Date: 20190304
  Receipt Date: 20190422
  Transmission Date: 20190711
  Serious: Yes (Hospitalization, Other)
  Sender: FDA-Public Use
  Company Number: US-EXELIXIS-CABO-19018862

PATIENT
  Age: 26 Year
  Sex: Male

DRUGS (2)
  1. CABOMETYX [Suspect]
     Active Substance: CABOZANTINIB S-MALATE
     Indication: BONE CANCER
     Dosage: 60 MG, QD WITHOUT FOOD
     Dates: start: 201901, end: 20190220
  2. CABOMETYX [Suspect]
     Active Substance: CABOZANTINIB S-MALATE
     Indication: EXTERNAL EAR NEOPLASM MALIGNANT
     Dosage: 60 MG, QD (9 PM WITHOUT FOOD
     Dates: start: 20190403

REACTIONS (15)
  - Gallbladder disorder [Recovered/Resolved]
  - Throat irritation [Recovered/Resolved]
  - Diarrhoea [Recovering/Resolving]
  - Sinus disorder [Recovered/Resolved]
  - Procedural pain [Unknown]
  - Candida infection [Recovered/Resolved]
  - Glossodynia [Recovered/Resolved]
  - Vomiting [Recovered/Resolved]
  - Road traffic accident [Unknown]
  - Headache [Recovered/Resolved]
  - Fatigue [Recovering/Resolving]
  - Gingival pain [Recovered/Resolved]
  - Off label use [Unknown]
  - Seizure [Unknown]
  - Decreased appetite [Recovering/Resolving]

NARRATIVE: CASE EVENT DATE: 201902
